FAERS Safety Report 7383766-0 (Version None)
Quarter: 2011Q1

REPORT INFORMATION
  Report Type: 
  Country: None (occurrence: None)
  Receive Date: 20110321
  Receipt Date: 20110318
  Transmission Date: 20110831
  Serious: No
  Sender: FDA-Public Use
  Company Number: US-PFIZER INC-2011060535

PATIENT
  Age: 69 Year
  Sex: Male
  Weight: 77.098 kg

DRUGS (3)
  1. NORVASC [Concomitant]
     Dosage: UNK
  2. ATENOLOL [Concomitant]
     Dosage: UNK
  3. LIPITOR [Suspect]
     Indication: BLOOD CHOLESTEROL INCREASED
     Dosage: 10 MG, DAILY
     Route: 048

REACTIONS (1)
  - MUSCLE SPASMS [None]
